FAERS Safety Report 8718154 (Version 2)
Quarter: 2013Q4

REPORT INFORMATION
  Report Type: Spontaneous
  Country: FR (occurrence: FR)
  Receive Date: 20120810
  Receipt Date: 20131106
  Transmission Date: 20140711
  Serious: Yes (Hospitalization)
  Sender: FDA-Public Use
  Company Number: FR-009507513-1206FRA00158

PATIENT
  Age: 87 Year
  Sex: Female
  Weight: 65 kg

DRUGS (11)
  1. JANUVIA [Suspect]
     Indication: TYPE 2 DIABETES MELLITUS
     Dosage: 100 MG, QD
     Route: 048
     Dates: start: 2011, end: 20120430
  2. PAROXETINE HYDROCHLORIDE [Suspect]
     Dosage: 10 MG, QD
     Route: 048
     Dates: start: 20120314, end: 20120510
  3. SIMVASTATIN [Suspect]
     Dosage: 40 MG, QD
     Route: 048
     Dates: end: 20120503
  4. MK-9378 [Suspect]
     Dosage: QD
     Route: 048
     Dates: start: 20120314, end: 20120320
  5. MK-9378 [Suspect]
     Dosage: QD
     Route: 048
     Dates: start: 20120321, end: 20120327
  6. MK-9378 [Suspect]
     Dosage: QD
     Route: 048
     Dates: start: 20120328, end: 20120420
  7. PLAVIX [Concomitant]
  8. ASPEGIC [Concomitant]
  9. LERCAN [Concomitant]
  10. APROVEL [Concomitant]
  11. SERESTA [Concomitant]
     Dosage: UNK UNK, PRN

REACTIONS (2)
  - Cholestatic liver injury [Recovering/Resolving]
  - Diarrhoea [Recovered/Resolved]
